FAERS Safety Report 13691841 (Version 19)
Quarter: 2018Q3

REPORT INFORMATION
  Report Type: Spontaneous
  Country: JP (occurrence: JP)
  Receive Date: 20170626
  Receipt Date: 20180730
  Transmission Date: 20181010
  Serious: Yes (Death, Hospitalization, Other)
  Sender: FDA-Public Use
  Company Number: JP-009507513-1706JPN001876J

PATIENT
  Age: 72 Year
  Sex: Male
  Weight: 50 kg

DRUGS (10)
  1. THYRADIN S [Concomitant]
     Active Substance: LEVOTHYROXINE SODIUM
     Dosage: 50 MICROGRAM, QD
     Route: 048
  2. ATORVASTATIN [Concomitant]
     Active Substance: ATORVASTATIN
     Dosage: 5.0 MG, QD
     Route: 048
  3. MALFA [Concomitant]
     Active Substance: ALUMINUM HYDROXIDE\MAGNESIUM HYDROXIDE
     Indication: PROPHYLAXIS
     Dosage: 30.0 ML, TID
     Route: 048
  4. AMLODIPINE [Concomitant]
     Active Substance: AMLODIPINE BESYLATE
     Dosage: 5.0 MG, QD
     Route: 048
  5. TRANEXAMIC ACID. [Concomitant]
     Active Substance: TRANEXAMIC ACID
     Indication: LUNG ADENOCARCINOMA
     Dosage: 1000.0 MG, QD
     Route: 051
     Dates: start: 20170618
  6. OXYCONTIN [Concomitant]
     Active Substance: OXYCODONE HYDROCHLORIDE
     Indication: LUNG ADENOCARCINOMA
     Dosage: 5.0 MG, BID
     Route: 048
  7. ADONA (CARBAZOCHROME SODIUM SULFONATE) [Concomitant]
     Active Substance: CARBAZOCHROME SODIUM SULFONATE
     Indication: LUNG ADENOCARCINOMA
     Dosage: 100.0 MG, QD
     Route: 051
     Dates: start: 20170618
  8. SOLACET F [Concomitant]
     Indication: PROPHYLAXIS
     Dosage: 500.0 ML, QD
     Route: 051
     Dates: start: 20170618
  9. KEYTRUDA [Suspect]
     Active Substance: PEMBROLIZUMAB
     Indication: LUNG ADENOCARCINOMA
     Dosage: 200 MG, Q3W
     Route: 041
     Dates: start: 20170615, end: 20170615
  10. UNASYN [Concomitant]
     Active Substance: AMPICILLIN SODIUM\SULBACTAM SODIUM
     Indication: PROPHYLAXIS
     Dosage: 3.0 G, QID
     Route: 042
     Dates: start: 20170629, end: 20170705

REACTIONS (9)
  - Interstitial lung disease [Recovered/Resolved]
  - Delirium [Recovering/Resolving]
  - Malignant neoplasm progression [Fatal]
  - Oropharyngeal pain [Recovering/Resolving]
  - Haemorrhage [Recovered/Resolved]
  - Lymphadenopathy [Unknown]
  - Pneumonia bacterial [Recovering/Resolving]
  - Haemoptysis [Recovered/Resolved]
  - Pyrexia [Recovered/Resolved]

NARRATIVE: CASE EVENT DATE: 2017
